FAERS Safety Report 22185458 (Version 1)
Quarter: 2023Q2

REPORT INFORMATION
  Report Type: Spontaneous
  Country: US (occurrence: US)
  Receive Date: 20230407
  Receipt Date: 20230407
  Transmission Date: 20230721
  Serious: No
  Sender: FDA-Public Use
  Company Number: US-SA-SAC20230405001449

PATIENT
  Sex: Female

DRUGS (1)
  1. DUPIXENT [Suspect]
     Active Substance: DUPILUMAB
     Indication: Dermatitis atopic
     Dosage: 300 MG, QOW
     Route: 058
     Dates: start: 202110

REACTIONS (7)
  - Pain [Unknown]
  - Product dose omission issue [Unknown]
  - Skin haemorrhage [Unknown]
  - Skin lesion [Unknown]
  - Scratch [Unknown]
  - Skin weeping [Unknown]
  - Dermatitis atopic [Unknown]
